FAERS Safety Report 15896721 (Version 1)
Quarter: 2019Q1

REPORT INFORMATION
  Report Type: Report from Study
  Country: AT (occurrence: AT)
  Receive Date: 20190131
  Receipt Date: 20190131
  Transmission Date: 20190417
  Serious: Yes (Other)
  Sender: FDA-Public Use
  Company Number: AT-BAUSCH-BL-2019-002664

PATIENT
  Age: 22 Year
  Sex: Male

DRUGS (18)
  1. LORAZEPAM. [Suspect]
     Active Substance: LORAZEPAM
     Route: 065
     Dates: start: 20180519, end: 20180519
  2. LORAZEPAM. [Suspect]
     Active Substance: LORAZEPAM
     Route: 065
     Dates: start: 20180522, end: 20180522
  3. OLANZAPINE. [Suspect]
     Active Substance: OLANZAPINE
     Indication: PRODUCT USED FOR UNKNOWN INDICATION
     Route: 065
     Dates: start: 20180518, end: 20180518
  4. CISORDINOL [Suspect]
     Active Substance: ZUCLOPENTHIXOL
     Indication: PRODUCT USED FOR UNKNOWN INDICATION
     Route: 065
     Dates: start: 20180519, end: 20180521
  5. CISORDINOL [Suspect]
     Active Substance: ZUCLOPENTHIXOL
     Route: 065
     Dates: start: 20180524, end: 20180524
  6. TRUXAL [Suspect]
     Active Substance: CHLORPROTHIXENE
     Route: 065
     Dates: start: 20180522, end: 20180522
  7. LORAZEPAM. [Suspect]
     Active Substance: LORAZEPAM
     Route: 065
     Dates: start: 20180521, end: 20180521
  8. TRUXAL [Suspect]
     Active Substance: CHLORPROTHIXENE
     Indication: PRODUCT USED FOR UNKNOWN INDICATION
     Route: 065
     Dates: start: 20180520, end: 20180520
  9. OLANZAPINE. [Suspect]
     Active Substance: OLANZAPINE
     Route: 065
     Dates: start: 20180520
  10. CISORDINOL [Suspect]
     Active Substance: ZUCLOPENTHIXOL
     Route: 065
     Dates: start: 20180522, end: 20180522
  11. CISORDINOL [Suspect]
     Active Substance: ZUCLOPENTHIXOL
     Route: 065
     Dates: start: 20180523, end: 20180523
  12. CISORDINOL [Suspect]
     Active Substance: ZUCLOPENTHIXOL
     Route: 065
     Dates: start: 20180525, end: 20180525
  13. LORAZEPAM. [Suspect]
     Active Substance: LORAZEPAM
     Indication: PRODUCT USED FOR UNKNOWN INDICATION
     Route: 065
     Dates: start: 20180518, end: 20180518
  14. TRUXAL [Suspect]
     Active Substance: CHLORPROTHIXENE
     Route: 065
     Dates: start: 20180523, end: 20180523
  15. OLANZAPINE. [Suspect]
     Active Substance: OLANZAPINE
     Route: 065
     Dates: start: 20180519, end: 20180519
  16. LORAZEPAM. [Suspect]
     Active Substance: LORAZEPAM
     Route: 065
     Dates: start: 20180523, end: 20180523
  17. LORAZEPAM. [Suspect]
     Active Substance: LORAZEPAM
     Route: 065
     Dates: start: 20180520, end: 20180520
  18. BUPROPION HYDROCHLORIDE. [Suspect]
     Active Substance: BUPROPION HYDROCHLORIDE
     Indication: PRODUCT USED FOR UNKNOWN INDICATION
     Route: 065
     Dates: start: 20180519, end: 20180521

REACTIONS (1)
  - Urine output decreased [Recovered/Resolved]

NARRATIVE: CASE EVENT DATE: 20180521
